FAERS Safety Report 21621317 (Version 20)
Quarter: 2024Q1

REPORT INFORMATION
  Report Type: Report from Study
  Country: US (occurrence: US)
  Receive Date: 20221121
  Receipt Date: 20240306
  Transmission Date: 20240409
  Serious: No
  Sender: FDA-Public Use
  Company Number: US-002147023-NVSC2022US261341

PATIENT
  Sex: Male

DRUGS (1)
  1. KESIMPTA [Suspect]
     Active Substance: OFATUMUMAB
     Indication: Product used for unknown indication
     Dosage: UNK, QMO
     Route: 065
     Dates: start: 20221104

REACTIONS (34)
  - Skin ulcer haemorrhage [Unknown]
  - Fatigue [Unknown]
  - Feeling cold [Unknown]
  - Burning sensation [Unknown]
  - Peripheral coldness [Unknown]
  - Depression [Unknown]
  - Balance disorder [Unknown]
  - Eye movement disorder [Unknown]
  - Diarrhoea [Unknown]
  - Dizziness [Not Recovered/Not Resolved]
  - Feeling drunk [Not Recovered/Not Resolved]
  - Abdominal discomfort [Unknown]
  - Aneurysm [Unknown]
  - Gastroenteritis viral [Unknown]
  - Chills [Unknown]
  - Skin ulcer [Unknown]
  - Muscular weakness [Unknown]
  - Anxiety [Unknown]
  - Blood cholesterol increased [Unknown]
  - Agitation [Unknown]
  - Anger [Unknown]
  - Urticaria [Unknown]
  - Pruritus [Recovered/Resolved]
  - Nasopharyngitis [Unknown]
  - Cough [Not Recovered/Not Resolved]
  - Oropharyngeal pain [Unknown]
  - Paranasal sinus hypersecretion [Unknown]
  - Respiratory tract congestion [Not Recovered/Not Resolved]
  - Influenza [Unknown]
  - Pyrexia [Unknown]
  - Visual field defect [Unknown]
  - Visual impairment [Unknown]
  - Headache [Unknown]
  - Gait disturbance [Unknown]

NARRATIVE: CASE EVENT DATE: 20220101
